FAERS Safety Report 7486670-2 (Version None)
Quarter: 2011Q2

REPORT INFORMATION
  Report Type: 
  Country: None (occurrence: None)
  Receive Date: 20110517
  Receipt Date: 20100811
  Transmission Date: 20111010
  Serious: No
  Sender: FDA-Public Use
  Company Number: US-NOVEN-ALL1-2010-04259

PATIENT

DRUGS (4)
  1. DAYTRANA [Suspect]
     Dosage: 60 MG, 1X/DAY:QD (2-30 MG. PATCHES)
     Route: 062
     Dates: start: 20080101, end: 20080101
  2. DAYTRANA [Suspect]
     Dosage: 30 MG, 1X/DAY:QD
     Route: 062
     Dates: start: 20100701
  3. DAYTRANA [Suspect]
     Dosage: 30 MG, 1X/DAY:QD
     Route: 062
     Dates: start: 20080101, end: 20080101
  4. RITALIN [Concomitant]
     Dosage: 40 MG, 3X/DAY:TID (2-20 MG. TABLETS)
     Route: 048

REACTIONS (6)
  - APPLICATION SITE IRRITATION [None]
  - DRUG ADMINISTERED AT INAPPROPRIATE SITE [None]
  - DISTURBANCE IN ATTENTION [None]
  - OVERDOSE [None]
  - INCORRECT DRUG ADMINISTRATION DURATION [None]
  - DRUG EFFECT DECREASED [None]
